FAERS Safety Report 18643122 (Version 1)
Quarter: 2020Q4

REPORT INFORMATION
  Report Type: Spontaneous
  Country: US (occurrence: US)
  Receive Date: 20201221
  Receipt Date: 20201221
  Transmission Date: 20210114
  Serious: Yes (Disabling)
  Sender: FDA-Public Use
  Company Number: US-HIKMA PHARMACEUTICALS USA INC.-US-H14001-20-05699

PATIENT
  Sex: Female
  Weight: 90.72 kg

DRUGS (1)
  1. METHOTREXATE. [Suspect]
     Active Substance: METHOTREXATE
     Indication: RHEUMATOID ARTHRITIS
     Dosage: AT DOSE OF 10 MG OR 12 MG
     Route: 048

REACTIONS (5)
  - Drug ineffective [Recovered/Resolved]
  - Hypertension [Unknown]
  - Product dose omission issue [Unknown]
  - Finger deformity [Not Recovered/Not Resolved]
  - Liver disorder [Unknown]
